FAERS Safety Report 23109009 (Version 1)
Quarter: 2023Q4

REPORT INFORMATION
  Report Type: Other
  Country: FR (occurrence: FR)
  Receive Date: 20231026
  Receipt Date: 20231026
  Transmission Date: 20240110
  Serious: Yes (Hospitalization)
  Sender: FDA-Public Use
  Company Number: None

PATIENT
  Age: 22 Year
  Sex: Female

DRUGS (1)
  1. IBUPROFEN [Suspect]
     Active Substance: IBUPROFEN
     Indication: Product used for unknown indication
     Dosage: UNK, TOTAL (UNE PRISE UNIQUE)
     Route: 048
     Dates: start: 20230121, end: 20230121

REACTIONS (1)
  - Respiratory tract oedema [None]

NARRATIVE: CASE EVENT DATE: 20230121
